FAERS Safety Report 7044026-0 (Version None)
Quarter: 2010Q4

REPORT INFORMATION
  Report Type: 
  Country: None (occurrence: None)
  Receive Date: 20101013
  Receipt Date: 20101007
  Transmission Date: 20110411
  Serious: Yes (Death, Other)
  Sender: FDA-Public Use
  Company Number: US-AMGEN-QUU444032

PATIENT
  Sex: Male

DRUGS (3)
  1. NPLATE [Suspect]
     Indication: IDIOPATHIC THROMBOCYTOPENIC PURPURA
     Dates: start: 20091020, end: 20100118
  2. RITUXIMAB [Concomitant]
     Dates: start: 20090928
  3. PREDNISONE [Concomitant]
     Dates: start: 20090926

REACTIONS (3)
  - DRUG INEFFECTIVE [None]
  - NON-HODGKIN'S LYMPHOMA [None]
  - THERAPEUTIC RESPONSE DECREASED [None]
